FAERS Safety Report 10067943 (Version 2)
Quarter: 2014Q2

REPORT INFORMATION
  Report Type: Spontaneous
  Country: US (occurrence: US)
  Receive Date: 20140409
  Receipt Date: 20140411
  Transmission Date: 20141212
  Serious: No
  Sender: FDA-Public Use
  Company Number: US-TEVA-474116USA

PATIENT
  Sex: Female

DRUGS (6)
  1. PARAGARD 380A [Suspect]
     Indication: CONTRACEPTION
     Route: 015
  2. LISINOPRIL [Concomitant]
  3. HYDROCHLOROTHIAZIDE [Concomitant]
  4. CIPROFLOXACIN [Concomitant]
  5. METRONIDAZOLE [Concomitant]
  6. AMLODIPINE [Concomitant]

REACTIONS (1)
  - Medical device complication [Not Recovered/Not Resolved]
